FAERS Safety Report 5585518-0 (Version None)
Quarter: 2008Q1

REPORT INFORMATION
  Report Type: 
  Country: None (occurrence: None)
  Receive Date: 20080109
  Receipt Date: 20080104
  Transmission Date: 20080703
  Serious: Yes (Other)
  Sender: FDA-Public Use
  Company Number: A0701465A

PATIENT
  Age: 19 Year
  Sex: Female

DRUGS (3)
  1. PAROXETINE [Suspect]
     Indication: DEPRESSION
     Dosage: 5MG PER DAY
     Route: 048
     Dates: start: 20040101
  2. PAXIL [Suspect]
     Indication: DEPRESSION
     Dosage: 20MG PER DAY
     Route: 048
     Dates: start: 19960101, end: 20040101
  3. NO CONCURRENT MEDICATION [Concomitant]

REACTIONS (18)
  - ABNORMAL BEHAVIOUR [None]
  - BLADDER SPASM [None]
  - BODY TEMPERATURE INCREASED [None]
  - CHEST DISCOMFORT [None]
  - CONVULSION [None]
  - DIZZINESS [None]
  - DRUG INEFFECTIVE [None]
  - DYSURIA [None]
  - EPISTAXIS [None]
  - EYE PAIN [None]
  - FATIGUE [None]
  - HEADACHE [None]
  - HOT FLUSH [None]
  - HYPERSENSITIVITY [None]
  - NERVOUS SYSTEM DISORDER [None]
  - PAIN [None]
  - PRURITUS [None]
  - SUICIDAL IDEATION [None]
